FAERS Safety Report 8905327 (Version 1)
Quarter: 2012Q4

REPORT INFORMATION
  Report Type: 
  Country: CA (occurrence: CA)
  Receive Date: 20121111
  Receipt Date: 20121111
  Transmission Date: 20130627
  Serious: Yes (Death, Other)
  Sender: FDA-Public Use
  Company Number: PHMT2007CA00440

PATIENT
  Sex: Male

DRUGS (5)
  1. SANDOSTATIN LAR [Suspect]
     Indication: METASTATIC CARCINOID TUMOUR
     Dosage: 20 mg, QMO
     Dates: start: 20051207
  2. SANDOSTATIN LAR [Suspect]
     Dosage: 30 mg, QMO
  3. SANDOSTATIN [Suspect]
  4. COVERSYL [Concomitant]
     Indication: BLOOD PRESSURE
  5. MULTIVITAMINS [Concomitant]

REACTIONS (11)
  - Death [Fatal]
  - Hypertension [Unknown]
  - Heart rate increased [Unknown]
  - Poor quality sleep [Not Recovered/Not Resolved]
  - Malaise [Unknown]
  - Listless [Unknown]
  - Fatigue [Unknown]
  - Decreased appetite [Unknown]
  - Diarrhoea [Unknown]
  - Asthenia [Unknown]
  - Drug ineffective [Unknown]
